FAERS Safety Report 9989212 (Version 1)
Quarter: 2014Q1

REPORT INFORMATION
  Report Type: Spontaneous
  Country: US (occurrence: US)
  Receive Date: 20140310
  Receipt Date: 20140310
  Transmission Date: 20141002
  Serious: Yes (Other)
  Sender: FDA-Public Use
  Company Number: US-BAYER-2014-033748

PATIENT
  Age: 21 Year
  Sex: Female

DRUGS (7)
  1. YAZ [Suspect]
  2. YASMIN [Suspect]
  3. PLAVIX [Concomitant]
  4. VICODIN [Concomitant]
  5. MINOCYCLINE [Concomitant]
     Dosage: 50 MG, UNK
     Route: 048
  6. MINOCYCLINE [Concomitant]
     Dosage: 50 MG, BID
     Route: 048
  7. TRETINOIN [Concomitant]
     Dosage: 0.025%
     Route: 061

REACTIONS (1)
  - Deep vein thrombosis [Recovered/Resolved]
